FAERS Safety Report 7691087-1 (Version None)
Quarter: 2011Q3

REPORT INFORMATION
  Report Type: 
  Country: None (occurrence: None)
  Receive Date: 20110818
  Receipt Date: 20110808
  Transmission Date: 20111222
  Serious: Yes (Hospitalization, Other)
  Sender: FDA-Public Use
  Company Number: JP-ROCHE-796257

PATIENT
  Sex: Male

DRUGS (3)
  1. OXALIPLATIN [Suspect]
     Indication: COLORECTAL CANCER RECURRENT
     Route: 041
  2. AVASTIN [Suspect]
     Indication: COLORECTAL CANCER RECURRENT
     Dosage: DOSAGE IS UNCERTAIN
     Route: 041
  3. XELODA [Suspect]
     Indication: COLORECTAL CANCER RECURRENT
     Route: 048

REACTIONS (2)
  - ILEUS [None]
  - COLITIS ISCHAEMIC [None]
